FAERS Safety Report 24793024 (Version 1)
Quarter: 2024Q4

REPORT INFORMATION
  Report Type: Spontaneous
  Country: TH (occurrence: TH)
  Receive Date: 20241231
  Receipt Date: 20241231
  Transmission Date: 20250114
  Serious: Yes (Life-Threatening, Hospitalization, Other)
  Sender: ENDO
  Company Number: TH-ENDO USA, INC.-2024-051009

PATIENT
  Age: 4 Decade
  Sex: Male

DRUGS (1)
  1. BUPROPION HYDROCHLORIDE [Suspect]
     Active Substance: BUPROPION HYDROCHLORIDE
     Indication: Major depression
     Dosage: 29 TABLETS OF 300 MG ER BUPROPION, UNKNOWN
     Route: 048

REACTIONS (8)
  - Encephalopathy [Recovered/Resolved]
  - Status epilepticus [Recovered/Resolved]
  - Electrocardiogram QT prolonged [Unknown]
  - Blood creatine phosphokinase increased [Unknown]
  - Suicide attempt [Recovered/Resolved]
  - Intentional overdose [Recovered/Resolved]
  - Aspartate aminotransferase increased [Unknown]
  - Alanine aminotransferase increased [Unknown]
